FAERS Safety Report 17005839 (Version 1)
Quarter: 2019Q4

REPORT INFORMATION
  Report Type: Spontaneous
  Country: US (occurrence: US)
  Receive Date: 20191106
  Receipt Date: 20191106
  Transmission Date: 20200122
  Serious: Yes (Other)
  Sender: FDA-Public Use
  Company Number: None

PATIENT
  Age: 95 Year
  Sex: Female

DRUGS (1)
  1. CAPECITABINE. [Suspect]
     Active Substance: CAPECITABINE
     Indication: B-CELL LYMPHOMA
     Dosage: ?          OTHER FREQUENCY:1000@AM, 500@PM;?
     Route: 048
     Dates: start: 20190605, end: 20191106

REACTIONS (1)
  - Disease progression [None]

NARRATIVE: CASE EVENT DATE: 20191106
